FAERS Safety Report 8021441-X (Version None)
Quarter: 2012Q1

REPORT INFORMATION
  Report Type: 
  Country: None (occurrence: None)
  Receive Date: 20120104
  Receipt Date: 20111020
  Transmission Date: 20120608
  Serious: Yes (Hospitalization)
  Sender: FDA-Public Use
  Company Number: CA-JNJFOC-20111212477

PATIENT
  Sex: Female

DRUGS (3)
  1. REMICADE [Suspect]
     Indication: CROHN'S DISEASE
     Route: 042
     Dates: start: 20050426
  2. REMICADE [Suspect]
     Route: 042
     Dates: start: 20110927, end: 20110927
  3. AZATHIOPRINE [Concomitant]

REACTIONS (1)
  - ILEOSTOMY [None]
